FAERS Safety Report 4848831-8 (Version None)
Quarter: 2005Q4

REPORT INFORMATION
  Report Type: 
  Country: None (occurrence: None)
  Receive Date: 20051115
  Receipt Date: 20050804
  Transmission Date: 20060501
  Serious: Yes (Hospitalization)
  Sender: FDA-Public Use
  Company Number: 401435

PATIENT
  Age: 55 Year
  Sex: Male

DRUGS (2)
  1. PEGASYS [Suspect]
     Indication: HEPATITIS C VIRUS
     Route: 065
     Dates: start: 20050316, end: 20050413
  2. COPEGUS [Suspect]
     Indication: HEPATITIS C VIRUS
     Dosage: ORAL
     Route: 048
     Dates: start: 20050316, end: 20050413

REACTIONS (5)
  - ASTHENIA [None]
  - BALANCE DISORDER [None]
  - DYSPNOEA [None]
  - MEMORY IMPAIRMENT [None]
  - PNEUMONIA [None]
